FAERS Safety Report 7499715-0 (Version None)
Quarter: 2011Q2

REPORT INFORMATION
  Report Type: 
  Country: None (occurrence: None)
  Receive Date: 20110524
  Receipt Date: 20110520
  Transmission Date: 20111010
  Serious: Yes (Life-Threatening, Hospitalization)
  Sender: FDA-Public Use
  Company Number: US-ROCHE-774961

PATIENT
  Sex: Male
  Weight: 80.7 kg

DRUGS (7)
  1. LEUCOVORIN CALCIUM [Suspect]
     Indication: RECTAL CANCER
     Route: 065
  2. FLOMAX [Concomitant]
  3. PHENERGAN HCL [Concomitant]
  4. AVASTIN [Suspect]
     Indication: COLORECTAL CANCER
     Dosage: LAST DOS EPRIOR TO SAE: 5 APRIL 2011
     Route: 065
  5. FLUOROURACIL [Suspect]
     Indication: RECTAL CANCER
     Route: 065
  6. COLONY STIMULATING FACTORS [Concomitant]
  7. OXALIPLATIN [Suspect]
     Indication: RECTAL CANCER
     Route: 065

REACTIONS (1)
  - TUMOUR LYSIS SYNDROME [None]
